FAERS Safety Report 20899472 (Version 5)
Quarter: 2023Q4

REPORT INFORMATION
  Report Type: Spontaneous
  Country: HU (occurrence: HU)
  Receive Date: 20220601
  Receipt Date: 20231229
  Transmission Date: 20240110
  Serious: Yes (Hospitalization, Other)
  Sender: FDA-Public Use
  Company Number: HU-NOVARTISPH-NVSC2022HU010358

PATIENT
  Age: 7 Month
  Sex: Female
  Weight: 8.5 kg

DRUGS (12)
  1. ZOLGENSMA [Suspect]
     Active Substance: ONASEMNOGENE ABEPARVOVEC-XIOI
     Indication: Spinal muscular atrophy
     Dosage: UNK
     Route: 042
     Dates: start: 20211103
  2. ZOLGENSMA [Suspect]
     Active Substance: ONASEMNOGENE ABEPARVOVEC-XIOI
     Dosage: UNK, ONCE/SINGLE (1X47.0 ML/ 1HOUR INFUSION)
     Route: 042
     Dates: start: 20220111, end: 20220111
  3. ZOLGENSMA [Suspect]
     Active Substance: ONASEMNOGENE ABEPARVOVEC-XIOI
     Dosage: UNK, ONCE/SINGLE (5X8.3 ML)
     Route: 042
     Dates: start: 20220111, end: 20220111
  4. ZOLGENSMA [Suspect]
     Active Substance: ONASEMNOGENE ABEPARVOVEC-XIOI
     Dosage: UNK, ONCE/SINGLE (1X5,5 ML)
     Route: 042
     Dates: start: 20220111, end: 20220111
  5. AMOXICILLIN [Suspect]
     Active Substance: AMOXICILLIN
     Indication: Urinary tract infection
     Dosage: UNK (FOR ONE WEEK)
     Route: 048
  6. FAMOTIDINE [Concomitant]
     Active Substance: FAMOTIDINE
     Indication: Steroid therapy
     Dosage: 4 MG, BID
     Route: 048
     Dates: start: 20220110
  7. FAMOTIDINE [Concomitant]
     Active Substance: FAMOTIDINE
     Dosage: UNK (2X0.5 MG/KG)
     Route: 048
     Dates: start: 20220410, end: 20220416
  8. VITAMIN D [Concomitant]
     Active Substance: VITAMIN D NOS
     Indication: Product used for unknown indication
     Dosage: UNK
     Route: 065
  9. VITAMIN D [Concomitant]
     Active Substance: VITAMIN D NOS
     Dosage: 1000 IU, QD
     Route: 065
     Dates: start: 20220110
  10. SYNAGIS [Concomitant]
     Active Substance: PALIVIZUMAB
     Indication: Product used for unknown indication
     Dosage: 130 MG
     Route: 030
     Dates: start: 20220210
  11. SYNAGIS [Concomitant]
     Active Substance: PALIVIZUMAB
     Dosage: 130 MG
     Route: 030
     Dates: start: 20220310
  12. VIGANTOL [Concomitant]
     Indication: Rickets
     Dosage: 500 UL, QD
     Route: 048
     Dates: start: 20211126

REACTIONS (18)
  - Hepatic enzyme increased [Recovering/Resolving]
  - Transaminases increased [Recovered/Resolved]
  - Urinary tract infection [Recovered/Resolved]
  - Peripheral oedema neonatal [Unknown]
  - Pyrexia [Recovered/Resolved]
  - Somnolence [Recovered/Resolved]
  - Rash maculo-papular [Unknown]
  - Diarrhoea [Recovering/Resolving]
  - Dehydration [Unknown]
  - Rotavirus test positive [Unknown]
  - Ketonuria [Unknown]
  - Ammonia decreased [Unknown]
  - Leukocytosis [Not Recovered/Not Resolved]
  - Proteinuria [Not Recovered/Not Resolved]
  - Vitamin D increased [Unknown]
  - Vomiting [Recovered/Resolved]
  - Pyrexia [Recovered/Resolved]
  - Body temperature increased [Unknown]

NARRATIVE: CASE EVENT DATE: 20220112
